FAERS Safety Report 4655332-9 (Version None)
Quarter: 2005Q2

REPORT INFORMATION
  Report Type: 
  Country: None (occurrence: None)
  Receive Date: 20050331
  Receipt Date: 20040823
  Transmission Date: 20051028
  Serious: No
  Sender: FDA-Public Use
  Company Number: US088191

PATIENT
  Age: 48 Year
  Sex: Male

DRUGS (5)
  1. NEULASTA [Suspect]
     Indication: CHEMOTHERAPY
     Dosage: 6 MG
     Dates: start: 20040811
  2. CARBOPLATIN [Concomitant]
  3. PACLITAXEL [Concomitant]
  4. DEXAMETHASONE [Concomitant]
  5. GRANISETRON HCL [Concomitant]

REACTIONS (2)
  - HICCUPS [None]
  - VOMITING [None]
